FAERS Safety Report 10947748 (Version 3)
Quarter: 2015Q2

REPORT INFORMATION
  Report Type: Spontaneous
  Country: JP (occurrence: JP)
  Receive Date: 20150324
  Receipt Date: 20150615
  Transmission Date: 20150821
  Serious: Yes (Hospitalization)
  Sender: FDA-Public Use
  Company Number: JP-ROCHE-1554853

PATIENT
  Age: 68 Year
  Sex: Male

DRUGS (4)
  1. EMPYNASE [Concomitant]
     Active Substance: PANCRELIPASE
     Dosage: DOSAGE IS UNCERTAIN.
     Route: 065
     Dates: start: 20150313
  2. TAMIFLU [Suspect]
     Active Substance: OSELTAMIVIR PHOSPHATE
     Indication: INFLUENZA
     Route: 048
     Dates: start: 20150313, end: 20150317
  3. HUSTAZOL (CLOPERASTINE FENDIZOATE) [Concomitant]
     Dosage: DOSAGE IS UNCERTAIN.
     Route: 065
     Dates: start: 20150313
  4. CALONAL [Concomitant]
     Active Substance: ACETAMINOPHEN
     Dosage: DOSAGE UNCERTAINTY A DOSE
     Route: 048
     Dates: start: 20150313

REACTIONS (2)
  - Loss of consciousness [Recovered/Resolved]
  - Seizure [Unknown]

NARRATIVE: CASE EVENT DATE: 20150313
